FAERS Safety Report 18262965 (Version 1)
Quarter: 2020Q3

REPORT INFORMATION
  Report Type: Other
  Country: IN (occurrence: IN)
  Receive Date: 20200914
  Receipt Date: 20200914
  Transmission Date: 20201103
  Serious: Yes (Other)
  Sender: FDA-Public Use
  Company Number: IN-APRECIA PHARMACEUTICALS-APRE20200073

PATIENT
  Age: 29 Year
  Sex: Male

DRUGS (2)
  1. LEVETIRACETAM. [Suspect]
     Active Substance: LEVETIRACETAM
     Indication: SEIZURE PROPHYLAXIS
     Dosage: UNKNOWN
     Route: 065
  2. UNKNOWN (IRREGULAR) MEDICATION [Concomitant]
     Indication: HYPERTENSION

REACTIONS (6)
  - Drug-induced liver injury [Recovering/Resolving]
  - Hepatocellular injury [Recovering/Resolving]
  - Pyrexia [Recovering/Resolving]
  - Hepatitis [Recovering/Resolving]
  - Hepatic function abnormal [Recovering/Resolving]
  - Chromaturia [Recovering/Resolving]
